FAERS Safety Report 4786392-2 (Version None)
Quarter: 2005Q4

REPORT INFORMATION
  Report Type: 
  Country: None (occurrence: None)
  Receive Date: 20051003
  Receipt Date: 20050920
  Transmission Date: 20060501
  Serious: Yes (Death)
  Sender: FDA-Public Use
  Company Number: US-MERCK-0509USA03018

PATIENT
  Age: 71 Year
  Sex: Female
  Weight: 59 kg

DRUGS (4)
  1. VIOXX [Suspect]
     Indication: OSTEOARTHRITIS
     Route: 048
     Dates: start: 20000501, end: 20020801
  2. VIOXX [Suspect]
     Route: 048
     Dates: start: 20000501, end: 20020801
  3. VIOXX [Suspect]
     Indication: BACK PAIN
     Route: 048
     Dates: start: 20000501, end: 20020801
  4. VIOXX [Suspect]
     Route: 048
     Dates: start: 20000501, end: 20020801

REACTIONS (3)
  - ARTERIOSCLEROSIS [None]
  - CARDIAC ARREST [None]
  - FATIGUE [None]
